FAERS Safety Report 14007562 (Version 1)
Quarter: 2017Q3

REPORT INFORMATION
  Report Type: Other
  Country: DE (occurrence: DE)
  Receive Date: 20170925
  Receipt Date: 20170925
  Transmission Date: 20171128
  Serious: Yes (Other)
  Sender: FDA-Public Use
  Company Number: DE-LUPIN PHARMACEUTICALS INC.-2017-05461

PATIENT
  Age: 83 Year
  Sex: Male
  Weight: 105 kg

DRUGS (1)
  1. MEMANTINE HYDROCHLORIDE. [Suspect]
     Active Substance: MEMANTINE HYDROCHLORIDE
     Indication: VASCULAR DEMENTIA
     Dosage: 10 MG
     Route: 048
     Dates: start: 20170717

REACTIONS (3)
  - Epilepsy [Unknown]
  - Arrhythmia [Unknown]
  - Muscle twitching [Unknown]

NARRATIVE: CASE EVENT DATE: 20170901
